FAERS Safety Report 25391354 (Version 1)
Quarter: 2025Q2

REPORT INFORMATION
  Report Type: Spontaneous
  Country: US (occurrence: US)
  Receive Date: 20250603
  Receipt Date: 20250603
  Transmission Date: 20250717
  Serious: Yes (Other)
  Sender: JOHNSON AND JOHNSON
  Company Number: US-JNJFOC-20250601501

PATIENT

DRUGS (3)
  1. INVEGA SUSTENNA [Suspect]
     Active Substance: PALIPERIDONE PALMITATE
     Indication: Product used for unknown indication
     Route: 030
  2. INVEGA SUSTENNA [Suspect]
     Active Substance: PALIPERIDONE PALMITATE
  3. INVEGA SUSTENNA [Suspect]
     Active Substance: PALIPERIDONE PALMITATE

REACTIONS (10)
  - Mental impairment [Unknown]
  - Blunted affect [Unknown]
  - Anhedonia [Unknown]
  - Sedation [Unknown]
  - Sleep disorder [Unknown]
  - Sexual dysfunction [Unknown]
  - Blood prolactin increased [Unknown]
  - Apathy [Unknown]
  - Fatigue [Unknown]
  - Brain fog [Unknown]
